FAERS Safety Report 25253520 (Version 2)
Quarter: 2025Q2

REPORT INFORMATION
  Report Type: Spontaneous
  Country: US (occurrence: US)
  Receive Date: 20250430
  Receipt Date: 20250617
  Transmission Date: 20250717
  Serious: Yes (Other)
  Sender: SUNOVION
  Company Number: US-SUMITOMO PHARMA SWITZERLAND GMBH-2025SPA004884

PATIENT

DRUGS (1)
  1. GEMTESA [Suspect]
     Active Substance: VIBEGRON
     Indication: Hypertonic bladder
     Route: 048
     Dates: start: 202206

REACTIONS (5)
  - Knee arthroplasty [Recovered/Resolved]
  - Arthropathy [Unknown]
  - Arthralgia [Unknown]
  - Procedural pain [Recovering/Resolving]
  - Post procedural discomfort [Recovering/Resolving]
